FAERS Safety Report 4549274-7 (Version None)
Quarter: 2005Q1

REPORT INFORMATION
  Report Type: 
  Country: None (occurrence: None)
  Receive Date: 20050110
  Receipt Date: 20050110
  Transmission Date: 20050727
  Serious: Yes (Other)
  Sender: FDA-Public Use
  Company Number: None

PATIENT
  Age: 70 Year
  Sex: Female
  Weight: 79.3795 kg

DRUGS (5)
  1. ZOMETA [Suspect]
     Indication: BREAST CANCER
     Dosage: DAILY, ORAL
     Route: 048
     Dates: start: 20010101
  2. DIGOXIN [Concomitant]
  3. LISINOPRIL [Concomitant]
  4. ASPIRIN [Concomitant]
  5. FEMARA [Concomitant]

REACTIONS (3)
  - JAW DISORDER [None]
  - OSTEONECROSIS [None]
  - PAIN IN JAW [None]
